FAERS Safety Report 5345133-0 (Version None)
Quarter: 2007Q2

REPORT INFORMATION
  Report Type: 
  Country: None (occurrence: None)
  Receive Date: 20070416
  Receipt Date: 20060524
  Transmission Date: 20071010
  Serious: Yes (Hospitalization)
  Sender: FDA-Public Use
  Company Number: GXBR2006US01192

PATIENT
  Age: 63 Year
  Sex: Male
  Weight: 108.8 kg

DRUGS (4)
  1. RESERPINE [Suspect]
     Indication: HYPERTENSION
     Dosage: 0.125 MG, QD, ORAL
     Route: 048
     Dates: start: 19660101
  2. CHLORTHALIDONE [Concomitant]
  3. VERAPAMIL [Concomitant]
  4. LIPITOR /NET/ (ATORVASTATIN CALCIUM) [Concomitant]

REACTIONS (1)
  - BLOOD PRESSURE INCREASED [None]
